FAERS Safety Report 26102381 (Version 1)
Quarter: 2025Q4

REPORT INFORMATION
  Report Type: Spontaneous
  Country: JP (occurrence: JP)
  Receive Date: 20251128
  Receipt Date: 20251128
  Transmission Date: 20260118
  Serious: Yes (Other)
  Sender: MERCK SHARP & DOHME LLC
  Company Number: JP-ASTRAZENECA-201224041_040120_P_1

PATIENT
  Sex: Female

DRUGS (5)
  1. ROCURONIUM BROMIDE [Suspect]
     Active Substance: ROCURONIUM BROMIDE
     Dosage: DOSE UNKNOWN
     Route: 065
  2. BRIDION [Suspect]
     Active Substance: SUGAMMADEX SODIUM
     Indication: Induction of anaesthesia
     Dosage: DOSE UNKNOWN
     Route: 042
     Dates: start: 20120809, end: 20120809
  3. ULTIVA [Suspect]
     Active Substance: REMIFENTANIL HYDROCHLORIDE
     Indication: Induction of anaesthesia
     Dosage: DOSE UNKNOWN
     Route: 042
     Dates: start: 20120809, end: 20120809
  4. CEFMETAZOLE SODIUM [Suspect]
     Active Substance: CEFMETAZOLE SODIUM
     Dosage: DOSE UNKNOWN
     Route: 065
  5. DIPRIVAN [Suspect]
     Active Substance: PROPOFOL
     Indication: Induction of anaesthesia
     Dosage: STRENGTH 10MG/ML, DOSE UNKNOWN
     Route: 042
     Dates: start: 20120809, end: 20120809

REACTIONS (1)
  - Anaphylactoid reaction [Recovered/Resolved]

NARRATIVE: CASE EVENT DATE: 20120809
